FAERS Safety Report 12679295 (Version 1)
Quarter: 2016Q3

REPORT INFORMATION
  Report Type: Spontaneous
  Country: US (occurrence: None)
  Receive Date: 20160823
  Receipt Date: 20160823
  Transmission Date: 20161109
  Serious: No
  Sender: FDA-Public Use
  Company Number: None

PATIENT
  Age: 24 Year
  Sex: Male

DRUGS (1)
  1. SUTENT [Suspect]
     Active Substance: SUNITINIB MALATE
     Indication: BRAIN NEOPLASM MALIGNANT

REACTIONS (4)
  - Oral disorder [None]
  - Tongue disorder [None]
  - Fatigue [None]
  - High arched palate [None]

NARRATIVE: CASE EVENT DATE: 20160822
